FAERS Safety Report 9778525 (Version 2)
Quarter: 2014Q1

REPORT INFORMATION
  Report Type: Spontaneous
  Country: US (occurrence: US)
  Receive Date: 20131223
  Receipt Date: 20140212
  Transmission Date: 20141002
  Serious: Yes (Other)
  Sender: FDA-Public Use
  Company Number: US-BAYER-2013-156451

PATIENT
  Age: 80 Year
  Sex: Female
  Weight: 71 kg

DRUGS (3)
  1. ALEVE CAPLET [Suspect]
     Indication: MUSCLE STRAIN
     Dosage: 1 DF, BID
     Route: 048
     Dates: start: 201311, end: 20131219
  2. HYDROCHLOROTHIAZIDE [Concomitant]
  3. SENNA [Concomitant]

REACTIONS (3)
  - Faeces discoloured [Not Recovered/Not Resolved]
  - Anaemia [Not Recovered/Not Resolved]
  - Incorrect drug administration duration [None]
